FAERS Safety Report 4317360-2 (Version None)
Quarter: 2004Q1

REPORT INFORMATION
  Report Type: 
  Country: None (occurrence: None)
  Receive Date: 20040305
  Receipt Date: 20031229
  Transmission Date: 20041129
  Serious: Yes (Other)
  Sender: FDA-Public Use
  Company Number: US-SHR-03-019202

PATIENT
  Age: 65 Year
  Sex: Male

DRUGS (1)
  1. CAMPATH [Suspect]
     Indication: CHRONIC LYMPHOCYTIC LEUKAEMIA REFRACTORY
     Dosage: 3/10/30 MG, INTRAVENOUS
     Route: 042
     Dates: start: 20031201, end: 20031201

REACTIONS (1)
  - BONE MARROW DEPRESSION [None]
